FAERS Safety Report 23671440 (Version 1)
Quarter: 2024Q1

REPORT INFORMATION
  Report Type: Spontaneous
  Country: US (occurrence: US)
  Receive Date: 20240326
  Receipt Date: 20240326
  Transmission Date: 20240410
  Serious: Yes (Other)
  Sender: FDA-Public Use
  Company Number: US-009507513-1610USA015235

PATIENT
  Age: 33 Year
  Sex: Female

DRUGS (21)
  1. SINEMET [Suspect]
     Active Substance: CARBIDOPA\LEVODOPA
     Indication: Parkinsonian gait
     Dosage: UNK
     Route: 048
  2. SINEMET [Suspect]
     Active Substance: CARBIDOPA\LEVODOPA
     Indication: Parkinsonism
  3. SINEMET [Suspect]
     Active Substance: CARBIDOPA\LEVODOPA
     Indication: Fall
  4. SINEMET [Suspect]
     Active Substance: CARBIDOPA\LEVODOPA
     Indication: Gait disturbance
  5. ROPINIROLE [Suspect]
     Active Substance: ROPINIROLE
     Indication: Parkinsonian gait
     Dosage: UNK
  6. ROPINIROLE [Suspect]
     Active Substance: ROPINIROLE
     Indication: Gait disturbance
  7. ROPINIROLE [Suspect]
     Active Substance: ROPINIROLE
     Indication: Parkinsonism
  8. ROPINIROLE [Suspect]
     Active Substance: ROPINIROLE
     Indication: Fall
  9. ROPINIROLE [Suspect]
     Active Substance: ROPINIROLE
     Indication: Fall
  10. ENTACAPONE [Suspect]
     Active Substance: ENTACAPONE
     Indication: Parkinsonism
     Dosage: UNK
  11. ENTACAPONE [Suspect]
     Active Substance: ENTACAPONE
     Indication: Parkinsonian gait
  12. ENTACAPONE [Suspect]
     Active Substance: ENTACAPONE
     Indication: Gait disturbance
  13. ENTACAPONE [Suspect]
     Active Substance: ENTACAPONE
     Indication: Fall
  14. ENTACAPONE [Suspect]
     Active Substance: ENTACAPONE
     Indication: Gait disturbance
  15. CARBIDOPA, LEVODOPA AND ENTACAPONE [Suspect]
     Active Substance: CARBIDOPA\ENTACAPONE\LEVODOPA
     Indication: Gait disturbance
  16. ENTACAPONE [Suspect]
     Active Substance: ENTACAPONE
     Indication: Parkinsonism
  17. ROPINIROLE [Suspect]
     Active Substance: ROPINIROLE
     Indication: Gait disturbance
  18. ENTACAPONE [Suspect]
     Active Substance: ENTACAPONE
     Indication: Fall
  19. CARBIDOPA, LEVODOPA AND ENTACAPONE [Suspect]
     Active Substance: CARBIDOPA\ENTACAPONE\LEVODOPA
     Indication: Parkinsonism
  20. ROPINIROLE [Suspect]
     Active Substance: ROPINIROLE
     Indication: Parkinsonism
  21. CARBIDOPA, LEVODOPA AND ENTACAPONE [Suspect]
     Active Substance: CARBIDOPA\ENTACAPONE\LEVODOPA
     Indication: Fall

REACTIONS (3)
  - Confusional state [Unknown]
  - Somnolence [Unknown]
  - Drug ineffective [Unknown]
